FAERS Safety Report 6388603-9 (Version None)
Quarter: 2009Q3

REPORT INFORMATION
  Report Type: 
  Country: None (occurrence: None)
  Receive Date: 20090930
  Receipt Date: 20090923
  Transmission Date: 20100115
  Serious: Yes (Death, Other)
  Sender: FDA-Public Use
  Company Number: 2009JP005797

PATIENT
  Age: 44 Year
  Sex: Male
  Weight: 68 kg

DRUGS (6)
  1. TACROLIMUS [Suspect]
     Indication: LIVER TRANSPLANT
     Dates: start: 20040101
  2. DACLIZUMAB(DACLIZUMAB) FORMULATION UNKNOWN [Suspect]
     Indication: LIVER TRANSPLANT
     Dates: start: 20040101
  3. MYCOPHENOLATE MOFETIL [Suspect]
     Indication: LIVER TRANSPLANT
     Dates: start: 20040101
  4. PREDNISOLONE [Suspect]
     Indication: LIVER TRANSPLANT
     Dates: start: 20040101
  5. PIRARUBICIN (PIRARUBICIN) [Concomitant]
  6. CHEMOTHERAPEUTICS NOS [Concomitant]

REACTIONS (2)
  - HEPATIC NEOPLASM MALIGNANT RECURRENT [None]
  - LUNG INFECTION [None]
